FAERS Safety Report 6671253-4 (Version None)
Quarter: 2010Q2

REPORT INFORMATION
  Report Type: 
  Country: None (occurrence: None)
  Receive Date: 20100407
  Receipt Date: 20100325
  Transmission Date: 20101027
  Serious: No
  Sender: FDA-Public Use
  Company Number: US-B.I. PHARMACEUTICALS,INC./RIDGEFIELD-2010-BP-01625BP

PATIENT
  Sex: Male
  Weight: 100.7 kg

DRUGS (8)
  1. MELOXICAM [Suspect]
     Indication: JOINT STIFFNESS
     Dosage: 15 MG
  2. MELOXICAM [Suspect]
     Indication: PAIN MANAGEMENT
  3. MELOXICAM [Suspect]
     Indication: INFLAMMATION
  4. DIOVAN [Suspect]
     Indication: BLOOD PRESSURE ABNORMAL
     Dosage: 160 MG
  5. NEO-SYNEPHRINOL [Concomitant]
     Indication: NASAL CONGESTION
  6. ASPIRIN [Concomitant]
     Indication: NECK PAIN
  7. TUMS [Concomitant]
     Indication: DYSPEPSIA
  8. NASACORT AQ [Concomitant]
     Indication: NASAL INFLAMMATION

REACTIONS (17)
  - ABDOMINAL PAIN UPPER [None]
  - ASTHENIA [None]
  - BLOOD PRESSURE INCREASED [None]
  - CHILLS [None]
  - DIZZINESS [None]
  - GASTROINTESTINAL DISORDER [None]
  - HOT FLUSH [None]
  - HYPERHIDROSIS [None]
  - MOTION SICKNESS [None]
  - MUSCLE RUPTURE [None]
  - NAUSEA [None]
  - PRESYNCOPE [None]
  - RETCHING [None]
  - TREMOR [None]
  - TUNNEL VISION [None]
  - UMBILICAL HERNIA [None]
  - VOMITING [None]
